FAERS Safety Report 10022018 (Version 2)
Quarter: 2014Q2

REPORT INFORMATION
  Report Type: Spontaneous
  Country: CN (occurrence: CN)
  Receive Date: 20140319
  Receipt Date: 20140422
  Transmission Date: 20141212
  Serious: Yes (Other)
  Sender: FDA-Public Use
  Company Number: CN-JNJFOC-20140308294

PATIENT
  Sex: 0

DRUGS (2)
  1. ITRACONAZOLE [Suspect]
     Indication: PULMONARY MYCOSIS
     Route: 042
  2. ITRACONAZOLE [Suspect]
     Indication: PULMONARY MYCOSIS
     Route: 042

REACTIONS (10)
  - Supraventricular extrasystoles [Unknown]
  - Ventricular arrhythmia [Recovered/Resolved]
  - Cardiac failure [Recovered/Resolved]
  - Ventricular extrasystoles [Unknown]
  - Ventricular fibrillation [Unknown]
  - Left ventricular dysfunction [Unknown]
  - Ventricular extrasystoles [Unknown]
  - Body temperature increased [Unknown]
  - Hyperhidrosis [Unknown]
  - Palpitations [Unknown]
